FAERS Safety Report 19170412 (Version 1)
Quarter: 2021Q2

REPORT INFORMATION
  Report Type: Spontaneous
  Country: AT (occurrence: AT)
  Receive Date: 20210422
  Receipt Date: 20210422
  Transmission Date: 20210717
  Serious: Yes (Other)
  Sender: FDA-Public Use
  Company Number: AT-PURDUE-USA-2021-0245531

PATIENT
  Age: 33 Year
  Sex: Female

DRUGS (18)
  1. LYRICA [Suspect]
     Active Substance: PREGABALIN
     Dosage: 150 MG, UNK
     Route: 065
     Dates: start: 20200716, end: 20200717
  2. SUBSTITOL [Suspect]
     Active Substance: MORPHINE SULFATE
     Indication: PRODUCT USED FOR UNKNOWN INDICATION
     Dosage: 400 MG, UNK
     Route: 065
     Dates: start: 20200608, end: 20200730
  3. LYRICA [Suspect]
     Active Substance: PREGABALIN
     Dosage: 125 MG, UNK
     Route: 065
     Dates: start: 20200715, end: 20200716
  4. DOMINAL (PROTHIPENDYL HYDROCHLORIDE) [Suspect]
     Active Substance: PROTHIPENDYL HYDROCHLORIDE
     Dosage: 80 MG, UNK
     Route: 065
     Dates: start: 20200607, end: 20200622
  5. ZYPREXA [Suspect]
     Active Substance: OLANZAPINE
     Dosage: 15 MG, UNK
     Route: 065
     Dates: start: 20200622, end: 20200626
  6. RISPERDAL [Suspect]
     Active Substance: RISPERIDONE
     Indication: SCHIZOAFFECTIVE DISORDER
     Dosage: 3 MG, UNK
     Route: 065
     Dates: start: 20200610, end: 20200615
  7. LYRICA [Suspect]
     Active Substance: PREGABALIN
     Dosage: 225 MG, UNK
     Route: 065
     Dates: start: 20200723, end: 20200729
  8. LYRICA [Suspect]
     Active Substance: PREGABALIN
     Dosage: 100 MG, UNK
     Route: 065
     Dates: start: 20200713, end: 20200715
  9. ZYPREXA [Suspect]
     Active Substance: OLANZAPINE
     Dosage: 5 MG, UNK
     Route: 065
     Dates: start: 20200612, end: 20200622
  10. RISPERDAL [Suspect]
     Active Substance: RISPERIDONE
     Indication: BULIMIA NERVOSA
     Dosage: 8 MG, UNK
     Route: 065
     Dates: start: 20200630, end: 20200728
  11. RISPERDAL [Suspect]
     Active Substance: RISPERIDONE
     Indication: CHRONIC HEPATITIS C
     Dosage: 4 MG, UNK
     Route: 065
     Dates: start: 20200615, end: 20200623
  12. LYRICA [Suspect]
     Active Substance: PREGABALIN
     Indication: PRODUCT USED FOR UNKNOWN INDICATION
     Dosage: 300 MG, UNK
     Route: 065
     Dates: start: 20200729, end: 20200730
  13. LYRICA [Suspect]
     Active Substance: PREGABALIN
     Dosage: 75 MG, UNK
     Route: 065
     Dates: start: 20200710, end: 20200713
  14. DOMINAL (PROTHIPENDYL HYDROCHLORIDE) [Suspect]
     Active Substance: PROTHIPENDYL HYDROCHLORIDE
     Indication: PRODUCT USED FOR UNKNOWN INDICATION
     Dosage: 40 MG, UNK
     Route: 065
     Dates: start: 20200622, end: 20200630
  15. ZYPREXA [Suspect]
     Active Substance: OLANZAPINE
     Indication: PRODUCT USED FOR UNKNOWN INDICATION
     Dosage: 15 MG, UNK
     Route: 065
     Dates: start: 20200626
  16. RISPERDAL [Suspect]
     Active Substance: RISPERIDONE
     Indication: DEPENDENCE
     Dosage: 6 MG, UNK
     Route: 065
     Dates: start: 20200728
  17. RISPERDAL [Suspect]
     Active Substance: RISPERIDONE
     Indication: BORDERLINE PERSONALITY DISORDER
     Dosage: 2 MG, UNK
     Route: 065
     Dates: start: 20200608, end: 20200610
  18. LYRICA [Suspect]
     Active Substance: PREGABALIN
     Dosage: 200 MG, UNK
     Route: 065
     Dates: start: 20200717, end: 20200723

REACTIONS (1)
  - Dystonia [Recovered/Resolved]

NARRATIVE: CASE EVENT DATE: 20200701
